FAERS Safety Report 12509621 (Version 8)
Quarter: 2016Q4

REPORT INFORMATION
  Report Type: Report from Study
  Country: BR (occurrence: BR)
  Receive Date: 20160629
  Receipt Date: 20161118
  Transmission Date: 20170207
  Serious: Yes (Life-Threatening, Hospitalization, Other)
  Sender: FDA-Public Use
  Company Number: PHHY2016BR088017

PATIENT
  Sex: Female
  Weight: 46 kg

DRUGS (13)
  1. AMLODIPINE [Concomitant]
     Active Substance: AMLODIPINE BESYLATE
     Dosage: 2.5 MG, UNK
     Route: 065
  2. DIOVAN [Concomitant]
     Active Substance: VALSARTAN
     Indication: PRODUCT USED FOR UNKNOWN INDICATION
     Route: 065
  3. LOSARTAN. [Concomitant]
     Active Substance: LOSARTAN
     Indication: BLOOD PRESSURE INCREASED
     Dosage: 1 DF, QD
     Route: 048
  4. AMLODIPINE [Concomitant]
     Active Substance: AMLODIPINE BESYLATE
     Indication: BLOOD PRESSURE INCREASED
     Dosage: 5 MG, BID (10 AM AND 10 PM)
     Route: 065
  5. SIMETHICONE (DIMETHICONE) [Concomitant]
     Active Substance: DIMETHICONE
     Indication: FLATULENCE
     Dosage: 3 DF, QD
     Route: 048
     Dates: start: 2008
  6. PANTOPRAZOLE [Concomitant]
     Active Substance: PANTOPRAZOLE SODIUM
     Indication: ABDOMINAL DISCOMFORT
     Dosage: 1 DF, QD
     Route: 048
  7. CHLORTHALIDONE. [Concomitant]
     Active Substance: CHLORTHALIDONE
     Indication: BLOOD PRESSURE INCREASED
     Dosage: 1 DF, QD
     Route: 048
  8. SANDOSTATIN LAR DEPOT [Suspect]
     Active Substance: OCTREOTIDE ACETATE
     Indication: CARCINOID TUMOUR
     Dosage: 40 MG, QMO (2 DF OF 20 MG)
     Route: 030
     Dates: start: 2008
  9. NEBIVOLOL. [Concomitant]
     Active Substance: NEBIVOLOL
     Indication: BLOOD PRESSURE INCREASED
     Dosage: 1 DF, QD
     Route: 048
  10. EMOSEC [Concomitant]
     Indication: DIARRHOEA
     Dosage: 1 DF, QD
     Route: 048
  11. SANDOSTATIN LAR DEPOT [Suspect]
     Active Substance: OCTREOTIDE ACETATE
     Indication: NEUROENDOCRINE TUMOUR
  12. NORIPURUM [Suspect]
     Active Substance: IRON POLYMALTOSE
     Indication: ANAEMIA
     Route: 065
  13. ATENSINA [Concomitant]
     Active Substance: CLONIDINE
     Indication: BLOOD PRESSURE INCREASED
     Dosage: 3 DF, QD
     Route: 048

REACTIONS (49)
  - Decubitus ulcer [Recovered/Resolved]
  - Thyroid disorder [Recovering/Resolving]
  - Depressed mood [Unknown]
  - Scab [Unknown]
  - Muscle atrophy [Unknown]
  - Memory impairment [Unknown]
  - Body height decreased [Unknown]
  - Paradoxical drug reaction [Unknown]
  - Confusional state [Unknown]
  - Nosocomial infection [Recovered/Resolved]
  - Fall [Recovering/Resolving]
  - Insomnia [Not Recovered/Not Resolved]
  - Eye oedema [Unknown]
  - Skin discolouration [Unknown]
  - Spinal disorder [Unknown]
  - Spinal pain [Unknown]
  - Anxiety [Unknown]
  - Purulence [Unknown]
  - Osteoporosis [Unknown]
  - Blood glucose increased [Recovering/Resolving]
  - Pain [Recovering/Resolving]
  - Sluggishness [Unknown]
  - Muscle spasms [Unknown]
  - Fatigue [Unknown]
  - Fear [Unknown]
  - Application site pain [Unknown]
  - Coma [Unknown]
  - Arthralgia [Recovering/Resolving]
  - Malaise [Unknown]
  - Weight decreased [Unknown]
  - Spinal cord infection [Recovered/Resolved]
  - Apathy [Unknown]
  - Somnolence [Unknown]
  - Pain in extremity [Unknown]
  - Eating disorder [Not Recovered/Not Resolved]
  - Abasia [Recovered/Resolved]
  - Injection site mass [Recovering/Resolving]
  - Scar [Unknown]
  - Mass [Unknown]
  - Hypophagia [Unknown]
  - Amnesia [Unknown]
  - Decreased appetite [Unknown]
  - Pneumonia [Recovered/Resolved]
  - Visual impairment [Unknown]
  - Weight decreased [Recovered/Resolved]
  - Anaemia [Unknown]
  - Injection site bruising [Unknown]
  - Injection site discolouration [Unknown]
  - Asthenia [Unknown]

NARRATIVE: CASE EVENT DATE: 2014
